FAERS Safety Report 11306056 (Version 2)
Quarter: 2015Q4

REPORT INFORMATION
  Report Type: Spontaneous
  Country: US (occurrence: US)
  Receive Date: 20150723
  Receipt Date: 20151009
  Transmission Date: 20160304
  Serious: Yes (Hospitalization, Other)
  Sender: FDA-Public Use
  Company Number: US-PFIZER INC-2015242890

PATIENT
  Age: 66 Year
  Sex: Male

DRUGS (5)
  1. TESTOSTERONE CIPIONATE [Suspect]
     Active Substance: TESTOSTERONE
     Indication: ASTHENIA
  2. TESTOSTERONE CIPIONATE [Suspect]
     Active Substance: TESTOSTERONE
     Indication: HORMONE REPLACEMENT THERAPY
     Dosage: 200 OIL, UNK
     Dates: start: 20120706, end: 20130924
  3. PROAIR HFA [Concomitant]
     Active Substance: ALBUTEROL SULFATE
     Indication: WHEEZING
     Dosage: UNK
     Dates: start: 20100330
  4. DEPO-TESTOSTERONE [Suspect]
     Active Substance: TESTOSTERONE CYPIONATE
     Indication: HORMONE REPLACEMENT THERAPY
     Dosage: UNK
     Dates: start: 20120706, end: 20130924
  5. DEPO-TESTOSTERONE [Suspect]
     Active Substance: TESTOSTERONE CYPIONATE
     Indication: ASTHENIA
     Dosage: UNK
     Dates: start: 20121120

REACTIONS (21)
  - Carotid artery occlusion [Unknown]
  - Acute coronary syndrome [Unknown]
  - Angina unstable [Unknown]
  - Arrhythmia [Unknown]
  - Arteriosclerosis [Unknown]
  - Aortic stenosis [Unknown]
  - Cardiomegaly [Unknown]
  - Dyslipidaemia [Unknown]
  - Fatigue [Unknown]
  - Pleural effusion [Unknown]
  - Asthenia [Unknown]
  - Carotid artery stenosis [Unknown]
  - Atrial fibrillation [Unknown]
  - Arteriosclerosis coronary artery [Unknown]
  - Ventricular hypertrophy [Unknown]
  - Myocardial infarction [Unknown]
  - Coronary artery disease [Unknown]
  - Pulmonary congestion [Unknown]
  - Hyperlipidaemia [Unknown]
  - Hypertension [Not Recovered/Not Resolved]
  - Cardiac valve disease [Unknown]

NARRATIVE: CASE EVENT DATE: 20130403
